FAERS Safety Report 24549493 (Version 1)
Quarter: 2024Q4

REPORT INFORMATION
  Report Type: Spontaneous
  Country: US (occurrence: US)
  Receive Date: 20241025
  Receipt Date: 20241025
  Transmission Date: 20250114
  Serious: No
  Sender: ALEXION PHARMACEUTICALS
  Company Number: US-ASTRAZENECA-202410GLO016193US

PATIENT

DRUGS (1)
  1. AIRSUPRA [Suspect]
     Active Substance: ALBUTEROL SULFATE\BUDESONIDE
     Dosage: UNK

REACTIONS (2)
  - Product dose omission issue [Unknown]
  - Device delivery system issue [Unknown]
